FAERS Safety Report 9737486 (Version 1)
Quarter: 2013Q4

REPORT INFORMATION
  Report Type: Spontaneous
  Country: IT (occurrence: IT)
  Receive Date: 20131206
  Receipt Date: 20131206
  Transmission Date: 20140711
  Serious: Yes (Other)
  Sender: FDA-Public Use
  Company Number: IT-009507513-1312ITA001488

PATIENT
  Age: 87 Year
  Sex: Male

DRUGS (10)
  1. TIMOPTOL [Suspect]
     Indication: GLAUCOMA
     Dosage: 2 DROPS, QD
     Route: 047
     Dates: start: 20100101, end: 20130915
  2. ENALAPRIL MALEATE [Concomitant]
     Indication: HYPERTENSION
     Dosage: 20 MG
     Route: 048
     Dates: start: 20130920
  3. OXCARBAZEPINE [Concomitant]
     Indication: EPILEPSY
     Dosage: 300 MG
     Route: 048
     Dates: start: 20130920
  4. FUROSEMIDE [Concomitant]
     Dosage: 50 MG TABLET DAILY
     Route: 048
  5. CARDIOASPIRIN [Concomitant]
     Dosage: 100MG
     Route: 048
  6. ATORVASTATIN ACTAVIS [Concomitant]
     Indication: HYPERCHOLESTEROLAEMIA
     Dosage: 10 MG TABLET
     Route: 048
  7. NORVASC [Concomitant]
     Indication: HYPERTENSION
     Dosage: 5 MG
     Route: 048
  8. PANTOPRAZOLE [Concomitant]
     Dosage: 20 MG
     Route: 048
  9. NITROGLYCERIN [Concomitant]
     Indication: HYPERTENSIVE CARDIOMYOPATHY
     Dosage: 5 MG, UNK
     Route: 062
  10. PROMAZINE HYDROCHLORIDE [Concomitant]
     Dosage: 10 DROPS, UNK

REACTIONS (3)
  - Atrial fibrillation [Recovered/Resolved]
  - Asthenia [Recovered/Resolved]
  - Asthenia [Recovered/Resolved]
